FAERS Safety Report 7495381-9 (Version None)
Quarter: 2011Q2

REPORT INFORMATION
  Report Type: 
  Country: None (occurrence: None)
  Receive Date: 20110523
  Receipt Date: 20110518
  Transmission Date: 20111010
  Serious: Yes (Hospitalization)
  Sender: FDA-Public Use
  Company Number: US-ELI_LILLY_AND_COMPANY-US200910001128

PATIENT
  Sex: Female

DRUGS (5)
  1. PROZAC [Concomitant]
     Indication: DEPRESSION
     Dosage: UNK
     Dates: start: 20070501
  2. BYETTA [Suspect]
     Dosage: UNK, UNKNOWN
     Route: 065
     Dates: start: 20060208, end: 20070618
  3. JANUVIA [Concomitant]
     Indication: DIABETES MELLITUS
     Dosage: UNK
     Dates: start: 20070501
  4. CALTRATE + D                       /00944201/ [Concomitant]
     Indication: MENOPAUSE
     Dosage: UNK
     Dates: start: 20070501
  5. TYLENOL (CAPLET) [Concomitant]
     Indication: PAIN
     Dosage: UNK
     Dates: start: 20070501, end: 20071201

REACTIONS (1)
  - PANCREATITIS ACUTE [None]
